FAERS Safety Report 14369671 (Version 1)
Quarter: 2018Q1

REPORT INFORMATION
  Report Type: Report from Study
  Country: GB (occurrence: GB)
  Receive Date: 20180110
  Receipt Date: 20180110
  Transmission Date: 20180509
  Serious: Yes (Other)
  Sender: FDA-Public Use
  Company Number: GB-ROCHE-2049063

PATIENT

DRUGS (6)
  1. CAPECITABINE. [Suspect]
     Active Substance: CAPECITABINE
     Indication: PANCREATIC CARCINOMA
     Dosage: IN TWO DIVIDED DOSES; FOR 21 DAYS FOLLOWED BY 7 DAYS^ REST
     Route: 048
  2. GEMCITABINE [Suspect]
     Active Substance: GEMCITABINE\GEMCITABINE HYDROCHLORIDE
     Indication: PANCREATIC CARCINOMA
     Dosage: OVER 30 MINUTES AND WAS ADMINISTERED ON DAYS 1, 8 AND 15 IN A 28 DAY CYCLE
     Route: 042
  3. LEUCOVORIN. [Suspect]
     Active Substance: LEUCOVORIN
     Indication: PANCREATIC CARCINOMA
     Route: 065
  4. CAPECITABINE. [Suspect]
     Active Substance: CAPECITABINE
     Route: 048
  5. UFT [Suspect]
     Active Substance: TEGAFUR\URACIL
     Indication: PANCREATIC CARCINOMA
     Route: 065
  6. CETUXIMAB. [Suspect]
     Active Substance: CETUXIMAB
     Indication: PANCREATIC CARCINOMA
     Dosage: 400MG/M2 ON DAY 1 AND 250MG/M2 SUBSEQUENTLY, WEEKLY FOR 5 WEEKS
     Route: 042

REACTIONS (14)
  - Aspartate aminotransferase increased [Unknown]
  - Hyperkalaemia [Unknown]
  - Device occlusion [Unknown]
  - Abdominal pain [Unknown]
  - Vomiting [Unknown]
  - Hypokalaemia [Unknown]
  - Hypersensitivity [Unknown]
  - Diarrhoea [Unknown]
  - Neutropenia [Unknown]
  - Infection [Unknown]
  - Alanine aminotransferase increased [Unknown]
  - Febrile neutropenia [Unknown]
  - Nausea [Unknown]
  - Pneumonitis [Unknown]
